FAERS Safety Report 7021155-9 (Version None)
Quarter: 2010Q3

REPORT INFORMATION
  Report Type: 
  Country: None (occurrence: None)
  Receive Date: 20100929
  Receipt Date: 20100918
  Transmission Date: 20110219
  Serious: Yes (Other)
  Sender: FDA-Public Use
  Company Number: PHHY2010US62495

PATIENT
  Sex: Female

DRUGS (1)
  1. FEMARA [Suspect]
     Indication: ENDOMETRIAL SARCOMA
     Dosage: 2.5 MG, QD
     Dates: start: 20100501

REACTIONS (6)
  - ARTHRALGIA [None]
  - CARPAL TUNNEL SYNDROME [None]
  - MUSCULOSKELETAL PAIN [None]
  - MUSCULOSKELETAL STIFFNESS [None]
  - NECK PAIN [None]
  - TRIGGER FINGER [None]
